FAERS Safety Report 9741050 (Version 1)
Quarter: 2013Q4

REPORT INFORMATION
  Report Type: Spontaneous
  Country: US (occurrence: US)
  Receive Date: 20131209
  Receipt Date: 20131209
  Transmission Date: 20140711
  Serious: Yes (Other)
  Sender: FDA-Public Use
  Company Number: US-UCBSA-104900

PATIENT
  Sex: Female

DRUGS (15)
  1. KEPPRA [Suspect]
     Dosage: 500 MG
  2. DIAMOX [Suspect]
     Indication: MIGRAINE
     Dosage: 500 MG
     Dates: end: 201306
  3. EFFEXOR-XR [Concomitant]
  4. TOPAMAX [Concomitant]
  5. ZITHROMAX [Concomitant]
  6. LYRICA [Concomitant]
  7. ADVIL [Concomitant]
     Indication: MIGRAINE
  8. IORICET [Concomitant]
  9. ATIVAN [Concomitant]
  10. ALBUTEROL [Concomitant]
  11. ROBITUSSIN [Concomitant]
  12. PREDNISONE [Concomitant]
  13. EFFEXOR [Concomitant]
  14. IBUPROFEN [Concomitant]
  15. PROPANOL [Concomitant]

REACTIONS (6)
  - Diarrhoea [Recovering/Resolving]
  - Gastrointestinal mucosal exfoliation [Recovering/Resolving]
  - Decreased appetite [Recovering/Resolving]
  - Weight decreased [Recovering/Resolving]
  - Tooth disorder [Recovering/Resolving]
  - Somnolence [Recovering/Resolving]
